FAERS Safety Report 8520847-X (Version None)
Quarter: 2012Q3

REPORT INFORMATION
  Report Type: 
  Country: None (occurrence: None)
  Receive Date: 20120719
  Receipt Date: 20120716
  Transmission Date: 20120928
  Serious: No
  Sender: FDA-Public Use
  Company Number: US-B.I. PHARMACEUTICALS,INC./RIDGEFIELD-2012-BP-04311BP

PATIENT
  Sex: Male

DRUGS (10)
  1. LOVAZA [Concomitant]
     Indication: SUPPLEMENTATION THERAPY
  2. MULTI-VITAMINS [Concomitant]
     Indication: SUPPLEMENTATION THERAPY
  3. VITAMIN D [Concomitant]
     Indication: SUPPLEMENTATION THERAPY
  4. LIPITOR [Concomitant]
     Indication: BLOOD CHOLESTEROL INCREASED
     Dosage: 10 MG
     Route: 048
  5. MILK THISTLE [Concomitant]
     Indication: SUPPLEMENTATION THERAPY
  6. PRADAXA [Suspect]
     Indication: ATRIAL FIBRILLATION
     Dosage: 300 MG
     Route: 048
     Dates: start: 20120101
  7. VITAMIN B COMPLEX CAP [Concomitant]
     Indication: SUPPLEMENTATION THERAPY
  8. UNKNOWN NAME [Concomitant]
     Indication: DRUG THERAPY
  9. DILTIAZEM [Concomitant]
     Indication: HYPERTENSION
     Dosage: 250 MG
     Route: 048
  10. VITAMIN-MINERAL COMPOUND TAB [Concomitant]
     Indication: SUPPLEMENTATION THERAPY

REACTIONS (2)
  - CONTUSION [None]
  - HEADACHE [None]
